FAERS Safety Report 9261896 (Version 1)
Quarter: 2013Q2

REPORT INFORMATION
  Report Type: Report from Study
  Country: CA (occurrence: CA)
  Receive Date: 20130429
  Receipt Date: 20130429
  Transmission Date: 20140414
  Serious: No
  Sender: FDA-Public Use
  Company Number: CA-US-EMD SERONO, INC.-7207827

PATIENT
  Sex: Female

DRUGS (6)
  1. GONAL-F [Suspect]
     Indication: IN VITRO FERTILISATION
     Route: 058
     Dates: start: 20130404, end: 20130405
  2. GONAL-F [Suspect]
     Route: 058
     Dates: start: 20130406, end: 20130407
  3. GONAL-F [Suspect]
     Route: 058
     Dates: start: 20130408
  4. LUVERIS [Suspect]
     Indication: IN VITRO FERTILISATION
     Route: 058
     Dates: start: 20130404, end: 20130405
  5. LUVERIS [Suspect]
     Route: 058
     Dates: start: 20130406, end: 20130407
  6. LUVERIS [Suspect]
     Route: 058
     Dates: start: 20130408

REACTIONS (3)
  - Vaginal haemorrhage [Unknown]
  - Abdominal distension [Unknown]
  - Abdominal pain [Unknown]
